FAERS Safety Report 5626026-8 (Version None)
Quarter: 2008Q1

REPORT INFORMATION
  Report Type: 
  Country: None (occurrence: None)
  Receive Date: 20080214
  Receipt Date: 20080205
  Transmission Date: 20080703
  Serious: Yes (Hospitalization, Other)
  Sender: FDA-Public Use
  Company Number: PHHO2007GR20631

PATIENT
  Age: 14 Year
  Sex: Female

DRUGS (4)
  1. DESFERAL [Suspect]
     Indication: HAEMOSIDEROSIS
     Dosage: 2500 MG, QD
     Route: 048
     Dates: start: 20030708, end: 20070801
  2. DESFERAL [Suspect]
     Dosage: 40 MG/KG, QD
     Route: 048
     Dates: start: 20070801, end: 20071127
  3. DESFERAL [Suspect]
     Dosage: 40 MG/KG, QD
     Route: 048
     Dates: end: 20080107
  4. DESFERAL [Suspect]
     Dosage: 40 MG/KG, QD
     Route: 048
     Dates: start: 20080113, end: 20080131

REACTIONS (8)
  - ABDOMINAL PAIN [None]
  - DIARRHOEA [None]
  - DRUG INEFFECTIVE [None]
  - DUODENAL ULCER [None]
  - PYREXIA [None]
  - RED BLOOD CELL SEDIMENTATION RATE INCREASED [None]
  - TRANSAMINASES INCREASED [None]
  - YERSINIA INFECTION [None]
